FAERS Safety Report 5347036-4 (Version None)
Quarter: 2007Q2

REPORT INFORMATION
  Report Type: 
  Country: None (occurrence: None)
  Receive Date: 20070604
  Receipt Date: 20070518
  Transmission Date: 20071010
  Serious: Yes (Hospitalization)
  Sender: FDA-Public Use
  Company Number: CHNY2007GB01701

PATIENT
  Age: 84 Year
  Sex: Female

DRUGS (5)
  1. SCOPODERM TTS (NCH)(HYOSCINE HYDROBROMIDE) TRANS-THERAPEUTIC-SYSTEM [Suspect]
     Indication: SALIVARY HYPERSECRETION
     Dosage: 1 DF, QD, TRANSDERMAL
     Route: 062
     Dates: start: 20070303, end: 20070303
  2. SINEMET [Concomitant]
  3. BENDROFLUMETHIAZIDE (BENDROFLUMETHIAZIDE) [Concomitant]
  4. CALCICHEW (CALCIUM CARBONATE) [Concomitant]
  5. ACETAMINOPHEN [Concomitant]

REACTIONS (8)
  - BODY TEMPERATURE INCREASED [None]
  - CEREBROVASCULAR ACCIDENT [None]
  - CONFUSIONAL STATE [None]
  - DYSARTHRIA [None]
  - DYSSTASIA [None]
  - HALLUCINATION [None]
  - IMMOBILE [None]
  - INCOHERENT [None]
